FAERS Safety Report 25336615 (Version 1)
Quarter: 2025Q2

REPORT INFORMATION
  Report Type: Spontaneous
  Country: US (occurrence: US)
  Receive Date: 20250520
  Receipt Date: 20250520
  Transmission Date: 20250717
  Serious: No
  Sender: LEO PHARM
  Company Number: US-LEO Pharma-379343

PATIENT
  Age: 72 Year
  Sex: Female

DRUGS (1)
  1. ADBRY [Suspect]
     Active Substance: TRALOKINUMAB-LDRM
     Indication: Dermatitis atopic
     Dosage: TREATMENT IS ONGOING??INJECT 2 PENS, 600MG UNDER THE SKIN ON DAY 1, THEN START MAINTENANCE DOSING AS
     Route: 058
     Dates: start: 202504

REACTIONS (1)
  - Arthralgia [Unknown]
